FAERS Safety Report 9902549 (Version 1)
Quarter: 2014Q1

REPORT INFORMATION
  Report Type: Spontaneous
  Country: CN (occurrence: CN)
  Receive Date: 20140217
  Receipt Date: 20140217
  Transmission Date: 20141002
  Serious: Yes (Death, Congenital Anomaly)
  Sender: FDA-Public Use
  Company Number: CN-JNJFOC-20140208077

PATIENT
  Age: 10 Day
  Sex: 0

DRUGS (2)
  1. TOPAMAX [Suspect]
     Indication: EPILEPSY
     Route: 064
     Dates: start: 201004, end: 20110831
  2. TOPAMAX [Suspect]
     Indication: EPILEPSY
     Route: 064
     Dates: start: 20110901

REACTIONS (2)
  - Heart disease congenital [Fatal]
  - Foetal exposure during pregnancy [Recovered/Resolved]
